FAERS Safety Report 9310442 (Version 1)
Quarter: 2013Q2

REPORT INFORMATION
  Report Type: Spontaneous
  Country: DE (occurrence: DE)
  Receive Date: 20130527
  Receipt Date: 20130527
  Transmission Date: 20140414
  Serious: Yes (Other)
  Sender: FDA-Public Use
  Company Number: PHHY2013DE052709

PATIENT
  Sex: Male

DRUGS (2)
  1. AFINITOR [Suspect]
     Dosage: 10 MG, QD
     Dates: start: 201209
  2. ZOMETA [Suspect]
     Dosage: 4 MG, QMO
     Dates: start: 201105

REACTIONS (1)
  - Osteonecrosis of jaw [Unknown]
